FAERS Safety Report 6419148-5 (Version None)
Quarter: 2009Q4

REPORT INFORMATION
  Report Type: 
  Country: None (occurrence: None)
  Receive Date: 20091029
  Receipt Date: 20091019
  Transmission Date: 20100525
  Serious: Yes (Other)
  Sender: FDA-Public Use
  Company Number: US-ROCHE-663620

PATIENT
  Age: 56 Year
  Sex: Female
  Weight: 51.4 kg

DRUGS (1)
  1. BONIVA [Suspect]
     Route: 048

REACTIONS (3)
  - GASTROOESOPHAGEAL REFLUX DISEASE [None]
  - RESORPTION BONE INCREASED [None]
  - TOOTH LOSS [None]
